FAERS Safety Report 25040775 (Version 1)
Quarter: 2025Q1

REPORT INFORMATION
  Report Type: Spontaneous
  Country: CA (occurrence: CA)
  Receive Date: 20250305
  Receipt Date: 20250305
  Transmission Date: 20250409
  Serious: Yes (Other)
  Sender: ACCORD
  Company Number: None

PATIENT
  Age: 57 Year
  Sex: Female

DRUGS (8)
  1. METHOTREXATE SODIUM [Suspect]
     Active Substance: METHOTREXATE SODIUM
     Indication: Rheumatoid arthritis
     Route: 058
  2. HYDROXYCHLOROQUINE [Concomitant]
     Active Substance: HYDROXYCHLOROQUINE
  3. INFLIXIMAB [Concomitant]
     Active Substance: INFLIXIMAB
     Indication: Rheumatoid arthritis
     Route: 042
  4. LEFLUNOMIDE [Concomitant]
     Active Substance: LEFLUNOMIDE
  5. METHOTREXATE [Concomitant]
     Active Substance: METHOTREXATE
     Indication: Rheumatoid arthritis
     Route: 048
  6. NAPROXEN [Concomitant]
     Active Substance: NAPROXEN
  7. FISH OIL\OMEGA-3 FATTY ACIDS [Concomitant]
     Active Substance: FISH OIL\OMEGA-3 FATTY ACIDS
  8. VITAMIN D3 [Concomitant]
     Active Substance: CHOLECALCIFEROL

REACTIONS (9)
  - Off label use [Recovering/Resolving]
  - Rheumatoid factor positive [Recovering/Resolving]
  - Alanine aminotransferase increased [Recovering/Resolving]
  - Anti-cyclic citrullinated peptide antibody positive [Recovering/Resolving]
  - Influenza [Recovering/Resolving]
  - Therapeutic product effect incomplete [Recovering/Resolving]
  - Viral infection [Recovering/Resolving]
  - C-reactive protein increased [Recovering/Resolving]
  - Condition aggravated [Recovering/Resolving]
